FAERS Safety Report 19730043 (Version 2)
Quarter: 2021Q4

REPORT INFORMATION
  Report Type: Report from Study
  Country: FR (occurrence: FR)
  Receive Date: 20210820
  Receipt Date: 20211126
  Transmission Date: 20220303
  Serious: Yes (Hospitalization, Other)
  Sender: FDA-Public Use
  Company Number: FR-JNJFOC-20190412157

PATIENT
  Age: 46 Year
  Sex: Female
  Weight: 98 kg

DRUGS (7)
  1. TRABECTEDIN [Suspect]
     Active Substance: TRABECTEDIN
     Indication: Soft tissue sarcoma
     Dosage: CYCLE 1 TO 2
     Route: 042
     Dates: start: 20190306, end: 20190327
  2. DURVALUMAB [Suspect]
     Active Substance: DURVALUMAB
     Indication: Soft tissue sarcoma
     Dosage: CYCLE 1 TO 2
     Route: 042
     Dates: start: 20190307, end: 20190328
  3. AERIUS [Concomitant]
     Route: 065
     Dates: start: 2017
  4. ESOMEPRAZOLE [Concomitant]
     Active Substance: ESOMEPRAZOLE
     Indication: Gastrooesophageal reflux disease
     Route: 065
     Dates: start: 2008
  5. EBASTINE [Concomitant]
     Active Substance: EBASTINE
     Indication: Product used for unknown indication
     Route: 048
     Dates: start: 2019
  6. DAFALGAN CODEINE [Concomitant]
     Active Substance: ACETAMINOPHEN\CODEINE PHOSPHATE
     Route: 065
     Dates: start: 20190420
  7. CETIRIZINE [Concomitant]
     Active Substance: CETIRIZINE HYDROCHLORIDE
     Route: 065
     Dates: start: 20190420

REACTIONS (4)
  - Acute kidney injury [Recovered/Resolved]
  - Febrile neutropenia [Recovered/Resolved]
  - Febrile neutropenia [Recovered/Resolved]
  - Blood creatine phosphokinase increased [Recovered/Resolved]

NARRATIVE: CASE EVENT DATE: 20190319
